FAERS Safety Report 11008558 (Version 1)
Quarter: 2015Q2

REPORT INFORMATION
  Report Type: Spontaneous
  Country: US (occurrence: None)
  Receive Date: 20150408
  Receipt Date: 20150408
  Transmission Date: 20150821
  Serious: Yes (Other)
  Sender: FDA-Public Use
  Company Number: 2817393

PATIENT
  Age: 69 Year
  Sex: Female

DRUGS (2)
  1. CYTARABINE. [Suspect]
     Active Substance: CYTARABINE
     Indication: METASTATIC NEOPLASM
     Dosage: 25 MG MILLIGRAM(S) 2 WEEKS, INTRACEREBRAL
  2. TOPOTECAN HYDROCHLORIDE. [Suspect]
     Active Substance: TOPOTECAN HYDROCHLORIDE
     Indication: METASTATIC NEOPLASM
     Dosage: .4 MG MILLIGRAM(S)  2 WEEK, INTRACEREBRAL

REACTIONS (2)
  - Drug interaction [None]
  - Cerebral cyst [None]

NARRATIVE: CASE EVENT DATE: 201401
